FAERS Safety Report 7818417-1 (Version None)
Quarter: 2011Q4

REPORT INFORMATION
  Report Type: 
  Country: None (occurrence: None)
  Receive Date: 20111017
  Receipt Date: 20111007
  Transmission Date: 20120403
  Serious: Yes (Other)
  Sender: FDA-Public Use
  Company Number: IE-ASTRAZENECA-2011SE53799

PATIENT
  Sex: Female

DRUGS (10)
  1. ATACAND [Suspect]
     Route: 048
     Dates: start: 20101001
  2. ASPIRIN [Concomitant]
  3. ISOPTIN SR [Concomitant]
  4. ALENDRONATE SODIUM [Concomitant]
     Dosage: 70/2800 MG
  5. PLAVIX [Concomitant]
  6. LIPITOR [Concomitant]
  7. CORDARONE [Concomitant]
  8. CARDURA [Concomitant]
  9. ATACAND HCT [Concomitant]
     Route: 048
     Dates: start: 20060101
  10. METHYLDOPA [Concomitant]

REACTIONS (1)
  - BLOOD PRESSURE INADEQUATELY CONTROLLED [None]
